FAERS Safety Report 7014905-9 (Version None)
Quarter: 2010Q3

REPORT INFORMATION
  Report Type: 
  Country: None (occurrence: None)
  Receive Date: 20100927
  Receipt Date: 20091203
  Transmission Date: 20110219
  Serious: No
  Sender: FDA-Public Use
  Company Number: US-ASTRAZENECA-2009UW08329

PATIENT
  Age: 54 Year
  Sex: Female
  Weight: 254 kg

DRUGS (2)
  1. ARIMIDEX [Suspect]
     Route: 048
     Dates: start: 20090401
  2. VITAMINS [Concomitant]

REACTIONS (6)
  - ABDOMINAL DISCOMFORT [None]
  - CRYING [None]
  - GENERALISED OEDEMA [None]
  - HOT FLUSH [None]
  - MUSCULAR WEAKNESS [None]
  - NAUSEA [None]
